FAERS Safety Report 9844797 (Version 2)
Quarter: 2014Q2

REPORT INFORMATION
  Report Type: Spontaneous
  Country: GB (occurrence: None)
  Receive Date: 20140122
  Receipt Date: 20140418
  Transmission Date: 20141212
  Serious: Yes (Hospitalization)
  Sender: FDA-Public Use
  Company Number: GB-014305

PATIENT
  Age: 60 Year
  Sex: Female

DRUGS (1)
  1. PICOLAX [Suspect]
     Indication: BOWEL PREPARATION
     Dosage: TOTAL, ONE SACHET OF PICOLAX TAKEN WITH 2 LITRES OF WATER
     Route: 048
     Dates: start: 201309, end: 201309

REACTIONS (3)
  - Hyponatraemic encephalopathy [None]
  - Diarrhoea [None]
  - Coma scale abnormal [None]
